FAERS Safety Report 6616347-4 (Version None)
Quarter: 2010Q1

REPORT INFORMATION
  Report Type: 
  Country: None (occurrence: None)
  Receive Date: 20100305
  Receipt Date: 20100219
  Transmission Date: 20100710
  Serious: Yes (Other)
  Sender: FDA-Public Use
  Company Number: US-JNJCH-2010005476

PATIENT
  Age: 21 Month
  Sex: Male

DRUGS (2)
  1. CHILDREN'S BENADRYL ALLERGY [Suspect]
     Indication: RASH
     Dosage: TEXT:APPROXIMATELY ^1/4 CUP^ UNSPECIFIED
     Route: 048
  2. COUGH AND COLD PREPARATIONS [Suspect]
     Indication: NASOPHARYNGITIS
     Dosage: TEXT:APPROXIMATELY ^9 TSP^ OVER PAST 72HOURS
     Route: 048

REACTIONS (4)
  - HALLUCINATION, TACTILE [None]
  - HALLUCINATION, VISUAL [None]
  - OFF LABEL USE [None]
  - WRONG DRUG ADMINISTERED [None]
